FAERS Safety Report 8355005-5 (Version None)
Quarter: 2012Q2

REPORT INFORMATION
  Report Type: 
  Country: None (occurrence: None)
  Receive Date: 20120510
  Receipt Date: 20120430
  Transmission Date: 20120825
  Serious: Yes (Hospitalization, Other)
  Sender: FDA-Public Use
  Company Number: IMP_05875_2012

PATIENT
  Age: 45 Year
  Sex: Female

DRUGS (1)
  1. DIGOXIN [Suspect]
     Indication: PRODUCT USED FOR UNKNOWN INDICATION
     Dosage: 0.25 MG, 100 TABLETS (NOT THE RECOMMENDED AMOUNT) ORAL
     Route: 048

REACTIONS (11)
  - POISONING [None]
  - ATRIOVENTRICULAR BLOCK COMPLETE [None]
  - ATRIOVENTRICULAR BLOCK SECOND DEGREE [None]
  - VENTRICULAR EXTRASYSTOLES [None]
  - SUPRAVENTRICULAR EXTRASYSTOLES [None]
  - OVERDOSE [None]
  - ATRIOVENTRICULAR BLOCK FIRST DEGREE [None]
  - NAUSEA [None]
  - VOMITING [None]
  - SUICIDE ATTEMPT [None]
  - ARRHYTHMIA [None]
